FAERS Safety Report 4309277-4 (Version None)
Quarter: 2004Q1

REPORT INFORMATION
  Report Type: 
  Country: None (occurrence: None)
  Receive Date: 20040227
  Receipt Date: 20040212
  Transmission Date: 20041129
  Serious: Yes (Life-Threatening)
  Sender: FDA-Public Use
  Company Number: 02100-JPN-03-0201

PATIENT
  Age: 54 Year
  Sex: Male

DRUGS (6)
  1. CILOSTAZOL [Suspect]
     Indication: HEART RATE INCREASED
     Dosage: 200 MG ORAL
     Route: 048
     Dates: start: 20030204, end: 20030221
  2. CILOSTAZOL [Suspect]
     Indication: HEART RATE INCREASED
     Dosage: 200 MG ORAL
     Route: 048
     Dates: start: 20030403, end: 20030414
  3. CANDESARTAN CILEXETIL [Concomitant]
  4. AMLODIPINE BESYLATE [Concomitant]
  5. ASPIRIN [Concomitant]
  6. FAMOTIDINE [Concomitant]

REACTIONS (3)
  - ELECTROCARDIOGRAM QT PROLONGED [None]
  - ELECTROCARDIOGRAM T WAVE ABNORMAL [None]
  - TORSADE DE POINTES [None]
